FAERS Safety Report 5511933-7 (Version None)
Quarter: 2007Q4

REPORT INFORMATION
  Report Type: 
  Country: None (occurrence: None)
  Receive Date: 20071109
  Receipt Date: 20071029
  Transmission Date: 20080405
  Serious: Yes (Other)
  Sender: FDA-Public Use
  Company Number: US-PFIZER INC-2007092056

PATIENT
  Sex: Female
  Weight: 56.818 kg

DRUGS (2)
  1. CHANTIX [Suspect]
     Indication: SMOKING CESSATION THERAPY
     Dosage: TEXT:0.5MG BID EVERY DAY TDD:1.0MG
     Route: 048
  2. VICODIN [Concomitant]
     Route: 048

REACTIONS (8)
  - ABNORMAL DREAMS [None]
  - HALLUCINATION [None]
  - INSOMNIA [None]
  - PANIC ATTACK [None]
  - PARAESTHESIA [None]
  - SLEEP TALKING [None]
  - SOMNOLENCE [None]
  - VOMITING [None]
